FAERS Safety Report 25473324 (Version 1)
Quarter: 2025Q2

REPORT INFORMATION
  Report Type: Spontaneous
  Country: US (occurrence: US)
  Receive Date: 20250624
  Receipt Date: 20250624
  Transmission Date: 20250717
  Serious: Yes (Other)
  Sender: PFIZER
  Company Number: US-PFIZER INC-202500126215

PATIENT
  Age: 47 Year
  Sex: Female

DRUGS (4)
  1. CARBOPLATIN [Suspect]
     Active Substance: CARBOPLATIN
     Indication: Bladder cancer
     Dosage: UNK, EVERY 3 WEEKS (FOR 3 CYCLES)
     Route: 042
  2. CARBOPLATIN [Suspect]
     Active Substance: CARBOPLATIN
     Indication: Metastases to peritoneum
  3. ETOPOSIDE [Suspect]
     Active Substance: ETOPOSIDE
     Indication: Bladder cancer
     Dosage: 100 MG/M2, EVERY 3 WEEKS, FOR 3 CYCLES
     Route: 042
  4. ETOPOSIDE [Suspect]
     Active Substance: ETOPOSIDE
     Indication: Metastases to peritoneum

REACTIONS (2)
  - Colitis [Unknown]
  - Epistaxis [Unknown]
